FAERS Safety Report 8395908-9 (Version None)
Quarter: 2012Q2

REPORT INFORMATION
  Report Type: 
  Country: None (occurrence: None)
  Receive Date: 20120530
  Receipt Date: 20120528
  Transmission Date: 20120825
  Serious: Yes (Death)
  Sender: FDA-Public Use
  Company Number: GB-ROCHE-1062376

PATIENT
  Sex: Male

DRUGS (4)
  1. LUCENTIS [Suspect]
     Indication: MACULAR DEGENERATION
     Route: 050
  2. PREDNISOLONE [Concomitant]
  3. LUCENTIS [Suspect]
     Route: 050
     Dates: start: 20110806
  4. CALCITONIN SALMON [Concomitant]

REACTIONS (2)
  - RECTAL CANCER [None]
  - PROSTATE CANCER [None]
